FAERS Safety Report 10330593 (Version 2)
Quarter: 2014Q3

REPORT INFORMATION
  Report Type: Report from Study
  Country: IT (occurrence: IT)
  Receive Date: 20140722
  Receipt Date: 20140807
  Transmission Date: 20150326
  Serious: Yes (Hospitalization)
  Sender: FDA-Public Use
  Company Number: IT-ROCHE-1437759

PATIENT
  Age: 11 Year
  Sex: Female

DRUGS (6)
  1. DOXORUBICIN [Suspect]
     Active Substance: DOXORUBICIN
     Indication: B-CELL LYMPHOMA
     Dosage: FROM 04/JUL/2014 TO 07/JUL/2014 , THE LAST DOSE OF DOXORUBICIN 16 MG WAS ADMINISTERED EVERY DAY BEFO
     Route: 042
     Dates: start: 20140403
  2. RITUXIMAB [Suspect]
     Active Substance: RITUXIMAB
     Indication: B-CELL LYMPHOMA
     Dosage: ON 04/JUL/2014 , THE LAST CYCLE OF RITUXIMAB 375 MG/M2 WAS ADMINISTERED BEFORE THE ONSET OF SERIOUS
     Route: 042
     Dates: start: 20140403
  3. ETOPOSIDE. [Suspect]
     Active Substance: ETOPOSIDE
     Indication: B-CELL LYMPHOMA
     Dosage: FROM 04/JUL/2014 TO 07/JUL/2014 , THE LAST CYCLE OF ETOPOSIDE 80 MG WAS ADMINISTERED EVERY DAY BEFOR
     Route: 042
     Dates: start: 20140403
  4. PREDNISOLONE. [Suspect]
     Active Substance: PREDNISOLONE
     Indication: B-CELL LYMPHOMA
     Dosage: FROM 04/JUL/2014 TO 08/JUL/2014 , THE LAST DOSE OF PREDNISOLONE 60MG/M2  WAS ADMINISTERED BEFORE THE
     Route: 048
     Dates: start: 20140403
  5. VINCRISTINE [Suspect]
     Active Substance: VINCRISTINE
     Indication: B-CELL LYMPHOMA
     Dosage: FROM 04/JUL/2014 TO 07/JUL/2014 , THE LAST DOSE OF VINCRISTINE 0.44 MG WAS ADMINISTERED EVERY DAY BE
     Route: 042
     Dates: start: 20140403
  6. CYCLOPHOSPHAMIDE. [Suspect]
     Active Substance: CYCLOPHOSPHAMIDE
     Indication: B-CELL LYMPHOMA
     Dosage: ON 08/JUL/2014,  THE LAST DOSE OF CYCLOPHOSPHAMIDE 1188 MG WAS ADMINISTERED BEFORE THE ONSET OF SERI
     Route: 042
     Dates: start: 20140403

REACTIONS (2)
  - Stomatitis [Not Recovered/Not Resolved]
  - Neutropenia [Not Recovered/Not Resolved]

NARRATIVE: CASE EVENT DATE: 20140714
